FAERS Safety Report 9614589 (Version 1)
Quarter: 2013Q4

REPORT INFORMATION
  Report Type: Spontaneous
  Country: US (occurrence: None)
  Receive Date: 20131009
  Receipt Date: 20131009
  Transmission Date: 20140711
  Serious: Yes (Life-Threatening)
  Sender: FDA-Public Use
  Company Number: None

PATIENT
  Age: 79 Year
  Sex: Female
  Weight: 58.97 kg

DRUGS (1)
  1. TRAMADOL ER [Suspect]
     Indication: PAIN
     Dosage: 300 MG  1 A DAY
     Dates: start: 20130828

REACTIONS (5)
  - Malaise [None]
  - Burning sensation [None]
  - Dyspnoea [None]
  - Insomnia [None]
  - Polydipsia [None]
